FAERS Safety Report 20722938 (Version 1)
Quarter: 2022Q2

REPORT INFORMATION
  Report Type: Spontaneous
  Country: US (occurrence: US)
  Receive Date: 20220419
  Receipt Date: 20220419
  Transmission Date: 20220721
  Serious: No
  Sender: FDA-Public Use
  Company Number: US-CADILA HEALTHCARE LIMITED-US-ZYDUS-075217

PATIENT

DRUGS (1)
  1. MECLIZINE HYDROCHLORIDE [Suspect]
     Active Substance: MECLIZINE HYDROCHLORIDE
     Indication: Meniere^s disease
     Dosage: 25 MILLIGRAM
     Route: 065

REACTIONS (6)
  - Balance disorder [Unknown]
  - Drug ineffective [Unknown]
  - Malaise [Unknown]
  - Dizziness [Unknown]
  - Vertigo [Unknown]
  - Nausea [Unknown]
